FAERS Safety Report 4926317-X (Version None)
Quarter: 2006Q1

REPORT INFORMATION
  Report Type: 
  Country: None (occurrence: None)
  Receive Date: 20060228
  Receipt Date: 20051027
  Transmission Date: 20060701
  Serious: No
  Sender: FDA-Public Use
  Company Number: US-GLAXOSMITHKLINE-A0579915A

PATIENT
  Age: 18 Year
  Sex: Female

DRUGS (3)
  1. LAMICTAL [Suspect]
     Indication: BIPOLAR DISORDER
     Dosage: 50MG TWICE PER DAY
     Route: 048
     Dates: start: 20051007, end: 20051021
  2. ZOLOFT [Concomitant]
  3. MULTI-VITAMIN [Concomitant]

REACTIONS (4)
  - LYMPHADENOPATHY [None]
  - MOUTH ULCERATION [None]
  - NASOPHARYNGITIS [None]
  - RASH GENERALISED [None]
